FAERS Safety Report 5229026-5 (Version None)
Quarter: 2007Q1

REPORT INFORMATION
  Report Type: 
  Country: None (occurrence: None)
  Receive Date: 20061201
  Receipt Date: 20060915
  Transmission Date: 20070707
  Serious: No
  Sender: FDA-Public Use
  Company Number: US200609004185

PATIENT
  Age: 39 Year
  Sex: Male

DRUGS (3)
  1. CYMBALTA [Suspect]
     Indication: DEPRESSION
     Dosage: 30 MG, 2/D
     Dates: start: 20060911
  2. COMPAZINE [Concomitant]
  3. NORCO [Concomitant]

REACTIONS (1)
  - DRUG SCREEN POSITIVE [None]
